FAERS Safety Report 7978312-4 (Version None)
Quarter: 2011Q4

REPORT INFORMATION
  Report Type: 
  Country: None (occurrence: None)
  Receive Date: 20111206
  Receipt Date: 20111201
  Transmission Date: 20120403
  Serious: Yes (Life-Threatening, Hospitalization, Other)
  Sender: FDA-Public Use
  Company Number: 2011SP050722

PATIENT
  Age: 85 Year
  Sex: Female

DRUGS (8)
  1. ZYPREXA [Suspect]
     Indication: DEPRESSION
     Dosage: 2.5 MG;QD;PO
     Route: 048
     Dates: start: 20110426, end: 20110906
  2. SENNOSIDE A+B CALCIUM [Concomitant]
  3. FERROUS CITRATE [Concomitant]
  4. MIRTAZAPINE [Suspect]
     Indication: DEPRESSION
     Dosage: 15 MG;QD;PO
     Route: 048
     Dates: start: 20110422, end: 20110906
  5. PRAVASTATIN SODIUM [Concomitant]
  6. MAGNESIUM OXIDE [Concomitant]
  7. AMOXICILLIN HYDRATE [Concomitant]
  8. MEILAX (ETHYL LOFLAZEPATE) [Suspect]
     Indication: DEPRESSION
     Dosage: 2 MG;QD;PO
     Route: 048
     Dates: start: 20110422, end: 20110906

REACTIONS (4)
  - SUICIDE ATTEMPT [None]
  - PNEUMONIA ASPIRATION [None]
  - PROTEINURIA [None]
  - HAEMATURIA [None]
